FAERS Safety Report 10544559 (Version 2)
Quarter: 2014Q4

REPORT INFORMATION
  Report Type: Spontaneous
  Country: US (occurrence: US)
  Receive Date: 20141027
  Receipt Date: 20141202
  Transmission Date: 20150529
  Serious: Yes (Other)
  Sender: FDA-Public Use
  Company Number: US-GILEAD-2014-0120000

PATIENT
  Age: 75 Year
  Sex: Male

DRUGS (2)
  1. RANEXA [Suspect]
     Active Substance: RANOLAZINE
     Indication: VENTRICULAR TACHYCARDIA
     Dosage: 500 MG, BID
     Route: 065
     Dates: start: 20141016
  2. RANEXA [Suspect]
     Active Substance: RANOLAZINE
     Indication: VENTRICULAR FIBRILLATION

REACTIONS (5)
  - Muscular weakness [Unknown]
  - Dialysis [Unknown]
  - Haematuria [Unknown]
  - Gait disturbance [Unknown]
  - Off label use [Unknown]
